FAERS Safety Report 20373475 (Version 4)
Quarter: 2022Q3

REPORT INFORMATION
  Report Type: Spontaneous
  Country: JP (occurrence: JP)
  Receive Date: 20220125
  Receipt Date: 20220809
  Transmission Date: 20221027
  Serious: Yes (Other)
  Sender: FDA-Public Use
  Company Number: JP-NOVARTISPH-NVSJ2022JP001410

PATIENT
  Age: 68 Year
  Sex: Male

DRUGS (1)
  1. BEOVU [Suspect]
     Active Substance: BROLUCIZUMAB-DBLL
     Indication: Neovascular age-related macular degeneration
     Dosage: 6 MG RIGHT EYE
     Route: 031
     Dates: start: 20220113, end: 20220113

REACTIONS (5)
  - Visual acuity reduced [Unknown]
  - Corneal opacity [Recovering/Resolving]
  - Keratitis [Unknown]
  - Corneal deposits [Unknown]
  - Ciliary hyperaemia [Unknown]

NARRATIVE: CASE EVENT DATE: 20220113
